FAERS Safety Report 7326483-5 (Version None)
Quarter: 2011Q1

REPORT INFORMATION
  Report Type: 
  Country: None (occurrence: None)
  Receive Date: 20110302
  Receipt Date: 20110225
  Transmission Date: 20110831
  Serious: Yes (Life-Threatening, Hospitalization)
  Sender: FDA-Public Use
  Company Number: US-ELI_LILLY_AND_COMPANY-US201102007660

PATIENT
  Age: 50 Year
  Sex: Female

DRUGS (3)
  1. PRASUGREL HYDROCHLORIDE [Suspect]
     Indication: ACUTE CORONARY SYNDROME
     Dosage: 60 MG, ONCE
     Dates: start: 20100727, end: 20100727
  2. PRASUGREL HYDROCHLORIDE [Suspect]
     Dosage: 10 MG, UNK
     Dates: start: 20100728
  3. ASPIRIN [Concomitant]
     Dosage: 81 MG, UNK

REACTIONS (1)
  - MYOCARDIAL INFARCTION [None]
